FAERS Safety Report 20616322 (Version 1)
Quarter: 2022Q1

REPORT INFORMATION
  Report Type: Spontaneous
  Country: US (occurrence: None)
  Receive Date: 20220321
  Receipt Date: 20220321
  Transmission Date: 20220423
  Serious: Yes (Life-Threatening)
  Sender: FDA-Public Use
  Company Number: None

PATIENT
  Age: 67 Year
  Sex: Male

DRUGS (2)
  1. TRAZODONE HYDROCHLORIDE [Suspect]
     Active Substance: TRAZODONE HYDROCHLORIDE
     Indication: Insomnia
     Dosage: OTHER FREQUENCY : AT BEDTIME;?
     Route: 048
     Dates: start: 20220226, end: 20220302
  2. CEFTRIAXONE [Suspect]
     Active Substance: CEFTRIAXONE
     Indication: Infection
     Dosage: OTHER STRENGTH : 2GM/VIL ;?
     Route: 042
     Dates: start: 20220226

REACTIONS (3)
  - Palpitations [None]
  - Torsade de pointes [None]
  - Long QT syndrome [None]

NARRATIVE: CASE EVENT DATE: 20220307
